FAERS Safety Report 14407976 (Version 4)
Quarter: 2018Q2

REPORT INFORMATION
  Report Type: Report from Study
  Country: FR (occurrence: FR)
  Receive Date: 20180118
  Receipt Date: 20180606
  Transmission Date: 20180711
  Serious: Yes (Death, Hospitalization)
  Sender: FDA-Public Use
  Company Number: FR-GILEAD-2018-0315702

PATIENT
  Age: 69 Year
  Sex: Male

DRUGS (12)
  1. ARANESP [Concomitant]
     Active Substance: DARBEPOETIN ALFA
     Indication: ANAEMIA
     Dosage: 150, 1 INJECTION PER WEEK
     Dates: end: 20141205
  2. ALLOPURINOL. [Concomitant]
     Active Substance: ALLOPURINOL
  3. CORTANCYL [Suspect]
     Active Substance: PREDNISONE
     Indication: PROPHYLAXIS AGAINST TRANSPLANT REJECTION
     Dosage: 5 MG, QD
     Route: 065
     Dates: start: 20141202, end: 20141205
  4. BACTRIM [Concomitant]
     Active Substance: SULFAMETHOXAZOLE\TRIMETHOPRIM
     Indication: PNEUMOCYSTIS JIROVECII INFECTION
  5. RAPAMUNE [Concomitant]
     Active Substance: SIROLIMUS
  6. COLCHIMAX                          /00728901/ [Concomitant]
     Active Substance: COLCHICINE\DICYCLOMINE HYDROCHLORIDE
  7. IDELALISIB [Suspect]
     Active Substance: IDELALISIB
     Indication: LYMPHOPLASMACYTOID LYMPHOMA/IMMUNOCYTOMA
     Dosage: 150 MG, BID
     Route: 048
     Dates: start: 20140916, end: 20141205
  8. TENORMIN [Concomitant]
     Active Substance: ATENOLOL
     Indication: HYPOTENSION
     Dosage: 50 MG, QD
     Dates: end: 20141205
  9. MEDROL [Concomitant]
     Active Substance: METHYLPREDNISOLONE
  10. TAHOR [Concomitant]
     Active Substance: ATORVASTATIN CALCIUM
  11. ZELITREX [Concomitant]
     Active Substance: VALACYCLOVIR HYDROCHLORIDE
     Indication: ANTIVIRAL PROPHYLAXIS
     Dosage: 500 MG, QD
     Dates: end: 20141205
  12. INEXIUM                            /01479302/ [Concomitant]
     Active Substance: ESOMEPRAZOLE MAGNESIUM
     Dosage: UNK
     Dates: end: 20141205

REACTIONS (1)
  - Sepsis [Fatal]

NARRATIVE: CASE EVENT DATE: 20141205
